FAERS Safety Report 6594656-5 (Version None)
Quarter: 2010Q1

REPORT INFORMATION
  Report Type: 
  Country: None (occurrence: None)
  Receive Date: 20100222
  Receipt Date: 20100210
  Transmission Date: 20100710
  Serious: Yes (Hospitalization)
  Sender: FDA-Public Use
  Company Number: US-SANOFI-AVENTIS-2010SA008482

PATIENT
  Sex: Male

DRUGS (4)
  1. GLYBURIDE [Suspect]
     Dosage: GLYBURIDE WAS STOPPED SOMETIME DURING HOSPITALIZATION.
  2. LANTUS [Suspect]
     Dosage: STARTING DOSE NOT PROVIDED; DOSE THE INCREASED PER CONSUMER TO 12 U EVENING ;5 U MORNING
     Route: 058
  3. LANTUS [Suspect]
     Route: 058
  4. PIOGLITAZONE [Concomitant]
     Dosage: STARTING DATE OR DOSAGES NOT PROVIDED.

REACTIONS (2)
  - BLOOD GLUCOSE INCREASED [None]
  - CEREBROVASCULAR ACCIDENT [None]
